FAERS Safety Report 23694921 (Version 2)
Quarter: 2024Q2

REPORT INFORMATION
  Report Type: Report from Study
  Country: US (occurrence: US)
  Receive Date: 20240402
  Receipt Date: 20240406
  Transmission Date: 20240716
  Serious: No
  Sender: FDA-Public Use
  Company Number: US-ABBVIE-5701168

PATIENT
  Sex: Female
  Weight: 96 kg

DRUGS (3)
  1. UBRELVY [Suspect]
     Active Substance: UBROGEPANT
     Indication: Migraine
     Dosage: FORM STRENGTH: 50 MILLIGRAM
     Route: 048
     Dates: start: 2021
  2. TYLENOL [Concomitant]
     Active Substance: ACETAMINOPHEN
     Indication: Migraine
  3. BUTALBITAL [Concomitant]
     Active Substance: BUTALBITAL
     Indication: Migraine

REACTIONS (2)
  - Migraine [Not Recovered/Not Resolved]
  - Inappropriate schedule of product administration [Unknown]
